FAERS Safety Report 8092809-0 (Version None)
Quarter: 2012Q1

REPORT INFORMATION
  Report Type: 
  Country: None (occurrence: None)
  Receive Date: 20120128
  Receipt Date: 20110812
  Transmission Date: 20120608
  Serious: No
  Sender: FDA-Public Use
  Company Number: US-ABBOTT-11P-163-0846363-00

PATIENT
  Sex: Male

DRUGS (3)
  1. PRILOSEC [Concomitant]
     Indication: HIATUS HERNIA
  2. PRILOSEC [Concomitant]
     Indication: GASTROOESOPHAGEAL REFLUX DISEASE
  3. HUMIRA [Suspect]
     Indication: CROHN'S DISEASE
     Dates: start: 20080101

REACTIONS (1)
  - INJECTION SITE PAIN [None]
